FAERS Safety Report 4382674-7 (Version None)
Quarter: 2004Q2

REPORT INFORMATION
  Report Type: 
  Country: None (occurrence: None)
  Receive Date: 20040622
  Receipt Date: 20020718
  Transmission Date: 20050107
  Serious: Yes (Other)
  Sender: FDA-Public Use
  Company Number: US-BRISTOL-MYERS SQUIBB COMPANY-11956745

PATIENT
  Age: 55 Year
  Sex: Male

DRUGS (4)
  1. PLACEBO [Suspect]
     Route: 042
     Dates: start: 20010524
  2. METHOTREXATE [Suspect]
     Dates: start: 19920501
  3. PREDNISONE [Concomitant]
     Dates: start: 19920101
  4. FOLIC ACID [Concomitant]
     Dates: start: 19920101

REACTIONS (1)
  - MALIGNANT MELANOMA [None]
